FAERS Safety Report 12153980 (Version 1)
Quarter: 2016Q1

REPORT INFORMATION
  Report Type: Report from Study
  Country: IT (occurrence: IT)
  Receive Date: 20160307
  Receipt Date: 20160307
  Transmission Date: 20160526
  Serious: Yes (Hospitalization)
  Sender: FDA-Public Use
  Company Number: IT-ACCORD-038309

PATIENT
  Age: 66 Year
  Sex: Male

DRUGS (3)
  1. ASPIRIN. [Concomitant]
     Active Substance: ASPIRIN
  2. LEVOTHYROXINE. [Concomitant]
     Active Substance: LEVOTHYROXINE
  3. PACLITAXEL/PACLITAXEL LIPOSOME [Suspect]
     Active Substance: PACLITAXEL
     Indication: HER-2 POSITIVE GASTRIC CANCER
     Dosage: RECEIVED THE LAST DOSE OF THE SUSPECT DRUG ON 10-JAN-2012
     Route: 042
     Dates: start: 20111031

REACTIONS (11)
  - Disease progression [Unknown]
  - Oedema peripheral [Unknown]
  - Haematemesis [Not Recovered/Not Resolved]
  - Hypotension [Recovered/Resolved]
  - Malignant neoplasm progression [None]
  - Haemoglobin decreased [None]
  - Platelet count decreased [None]
  - Off label use [Unknown]
  - HER-2 positive gastric cancer [None]
  - Pain [Not Recovered/Not Resolved]
  - Asthenia [Recovered/Resolved]

NARRATIVE: CASE EVENT DATE: 20120119
